FAERS Safety Report 12332924 (Version 2)
Quarter: 2016Q2

REPORT INFORMATION
  Report Type: Spontaneous
  Country: FR (occurrence: FR)
  Receive Date: 20160504
  Receipt Date: 20160606
  Transmission Date: 20160815
  Serious: Yes (Hospitalization)
  Sender: FDA-Public Use
  Company Number: FR-PFIZER INC-2016237566

PATIENT
  Age: 79 Year
  Sex: Female

DRUGS (4)
  1. SOLU-MEDROL [Suspect]
     Active Substance: METHYLPREDNISOLONE SODIUM SUCCINATE
     Indication: BILE DUCT CANCER
     Dosage: 60 MG, UNK
     Route: 042
     Dates: start: 20160330, end: 20160330
  2. ZOPHREN /00955301/ [Suspect]
     Active Substance: ONDANSETRON
     Indication: BILE DUCT CANCER
     Dosage: 8 MG, UNK
     Route: 048
     Dates: start: 20160330, end: 20160330
  3. GEMCITABINE [Concomitant]
     Active Substance: GEMCITABINE\GEMCITABINE HYDROCHLORIDE
     Indication: BILE DUCT CANCER
  4. OXALIPLATIN. [Suspect]
     Active Substance: OXALIPLATIN
     Indication: BILE DUCT CANCER
     Dosage: 180 MG, CYCLIC
     Route: 042
     Dates: start: 20160330, end: 20160330

REACTIONS (9)
  - Chills [Recovered/Resolved]
  - Back pain [Unknown]
  - Chills [Unknown]
  - Pruritus [Recovered/Resolved]
  - Arthralgia [Unknown]
  - Oxygen saturation decreased [Unknown]
  - Neck pain [Recovered/Resolved]
  - Tachycardia [Unknown]
  - Pyrexia [Unknown]

NARRATIVE: CASE EVENT DATE: 20160330
